FAERS Safety Report 8517909-X (Version None)
Quarter: 2012Q3

REPORT INFORMATION
  Report Type: 
  Country: None (occurrence: None)
  Receive Date: 20120718
  Receipt Date: 20110714
  Transmission Date: 20120928
  Serious: No
  Sender: FDA-Public Use
  Company Number: US-BRISTOL-MYERS SQUIBB COMPANY-15902406

PATIENT
  Age: 70 Year
  Sex: Male
  Weight: 95 kg

DRUGS (1)
  1. COUMADIN [Suspect]
     Indication: THROMBOSIS
     Dosage: 7.5 MG ONCE DAILY FIVE DAYS A WEEK AND COUMADIN 5 MG TWO DAYS A WEEK ABOUT TWO MONTHS AGO
     Dates: start: 20110101

REACTIONS (1)
  - INTERNATIONAL NORMALISED RATIO DECREASED [None]
